FAERS Safety Report 9250622 (Version 1)
Quarter: 2013Q1

REPORT INFORMATION
  Report Type: Spontaneous
  Country: US (occurrence: None)
  Receive Date: 20130305
  Receipt Date: 20130305
  Transmission Date: 20140127
  Serious: Yes (Other)
  Sender: FDA-Public Use
  Company Number: 163-21880-12063214

PATIENT
  Sex: 0

DRUGS (2)
  1. REVLIMID(LENALIDOMIDE)(10 MILLIGRAM, CAPSULES) [Suspect]
     Indication: DIFFUSE LARGE B-CELL LYMPHOMA
     Dosage: DAILY ON DAYS 1-21 OF EVERY 28-DAY CYCLE
     Route: 048
  2. RITUXIMAB [Suspect]
     Indication: DIFFUSE LARGE B-CELL LYMPHOMA
     Dosage: WEEKLY FOR 4 DOSES DURING CYCLE 1
     Route: 042

REACTIONS (10)
  - Neutropenia [None]
  - Thrombocytopenia [None]
  - Lymphopenia [None]
  - Fatigue [None]
  - Rash [None]
  - Oedema [None]
  - Embolism [None]
  - Liver function test abnormal [None]
  - Blood lactate dehydrogenase increased [None]
  - Electrolyte imbalance [None]
